FAERS Safety Report 4466484-8 (Version None)
Quarter: 2004Q3

REPORT INFORMATION
  Report Type: 
  Country: None (occurrence: None)
  Receive Date: 20040930
  Receipt Date: 20040916
  Transmission Date: 20050211
  Serious: Yes (Hospitalization)
  Sender: FDA-Public Use
  Company Number: 20040900401

PATIENT
  Age: 66 Year
  Sex: Male
  Weight: 73.4827 kg

DRUGS (6)
  1. HEP-LOCK [Suspect]
     Indication: PROPHYLAXIS
     Dosage: 3 CC ONCE IV
     Route: 042
     Dates: start: 20040915, end: 20040915
  2. METOPROLOL [Concomitant]
  3. ACETYLSALICYLIC ACID SRT [Concomitant]
  4. COUMADIN [Concomitant]
  5. LIPITOR [Concomitant]
  6. IRESSA [Concomitant]

REACTIONS (6)
  - ATAXIA [None]
  - CAROTID ARTERY ANEURYSM [None]
  - CEREBROVASCULAR DISORDER [None]
  - CONFUSIONAL STATE [None]
  - METASTASES TO CENTRAL NERVOUS SYSTEM [None]
  - MICROANGIOPATHY [None]
